FAERS Safety Report 9840175 (Version 1)
Quarter: 2014Q1

REPORT INFORMATION
  Report Type: Spontaneous
  Country: US (occurrence: None)
  Receive Date: 20140121
  Receipt Date: 20140121
  Transmission Date: 20141002
  Serious: No
  Sender: FDA-Public Use
  Company Number: None

PATIENT
  Age: 59 Year
  Sex: Male
  Weight: 112.7 kg

DRUGS (1)
  1. DIMETHYL FUMARATE [Suspect]
     Route: 048
     Dates: start: 20131003, end: 20131111

REACTIONS (1)
  - Pyrexia [None]
